FAERS Safety Report 17498474 (Version 1)
Quarter: 2020Q1

REPORT INFORMATION
  Report Type: Spontaneous
  Country: US (occurrence: US)
  Receive Date: 20200304
  Receipt Date: 20200304
  Transmission Date: 20200409
  Serious: Yes (Other)
  Sender: FDA-Public Use
  Company Number: US-ALLERGAN-2008884US

PATIENT
  Sex: Male

DRUGS (6)
  1. NORVASC [Concomitant]
     Active Substance: AMLODIPINE BESYLATE
     Indication: HYPERTENSION
     Dosage: 10 MG
  2. VITAMIN B COMPLEX [Concomitant]
     Active Substance: CYANOCOBALAMIN\DEXPANTHENOL\NIACINAMIDE\PYRIDOXINE HYDROCHLORIDE\RIBOFLAVIN 5^-PHOSPHATE SODIUM\THIAMINE HYDROCHLORIDE\VITAMIN B COMPLEX
     Indication: THYROID DISORDER
  3. ZINC. [Concomitant]
     Active Substance: ZINC
     Indication: THYROID DISORDER
     Dosage: 230 MG
  4. VITAMIN D3 [Concomitant]
     Active Substance: CHOLECALCIFEROL
     Indication: THYROID DISORDER
  5. ARMOUR THYROID [Suspect]
     Active Substance: THYROID, PORCINE
     Indication: THYROID DISORDER
     Dosage: 60 MG, BID
     Route: 048
     Dates: start: 2019
  6. IRON [Concomitant]
     Active Substance: IRON
     Indication: THYROID DISORDER
     Dosage: 25 MG

REACTIONS (5)
  - Anxiety [Unknown]
  - Sleep disorder [Unknown]
  - Feeling abnormal [Unknown]
  - Palpitations [Unknown]
  - Fibromyalgia [Unknown]
